FAERS Safety Report 8772616 (Version 1)
Quarter: 2012Q4

REPORT INFORMATION
  Report Type: 
  Country: US (occurrence: US)
  Receive Date: 20120905
  Receipt Date: 20120905
  Transmission Date: 20130627
  Serious: Yes (Hospitalization)
  Sender: FDA-Public Use
  Company Number: US-BAYER-2012-090839

PATIENT
  Age: 34 Year
  Sex: Female

DRUGS (10)
  1. YASMIN [Suspect]
     Indication: DYSFUNCTIONAL UTERINE BLEEDING
     Dosage: UNK
  2. NPH HUMULIN [Concomitant]
     Dosage: 40 units at bedtime
     Route: 058
  3. HUMALOG [Concomitant]
     Dosage: UNK, Sliding scale
  4. METFORMIN [Concomitant]
     Dosage: 1500 mg, daily
  5. LISINOPRIL [Concomitant]
     Dosage: 40 mg, bedtime
  6. IBUPROFEN [Concomitant]
     Dosage: 600 mg p.r.n. (interpreted as needed)
  7. ZOCOR [Concomitant]
     Dosage: 20 mg, daily
  8. HYDROCHLOROTHIAZIDE [Concomitant]
     Dosage: 25 mg, daily
  9. GENOTROPIN [Concomitant]
     Dosage: 1.6 mg, daily
  10. LEVAQUIN [Concomitant]
     Indication: URINARY TRACT INFECTION
     Dosage: UNK

REACTIONS (1)
  - Pulmonary embolism [None]
